FAERS Safety Report 9031754 (Version 2)
Quarter: 2013Q1

REPORT INFORMATION
  Report Type: Spontaneous
  Country: IT (occurrence: IT)
  Receive Date: 20130124
  Receipt Date: 20130125
  Transmission Date: 20140127
  Serious: Yes (Other)
  Sender: FDA-Public Use
  Company Number: IT-BRISTOL-MYERS SQUIBB COMPANY-17299488

PATIENT
  Age: 66 Year
  Sex: Female

DRUGS (3)
  1. COUMADIN TABS 5 MG [Suspect]
     Dosage: 1 DF = 10 TABS
     Route: 048
     Dates: start: 20121001
  2. CARVEDILOL [Suspect]
     Dosage: 34 TABS
     Route: 048
     Dates: start: 20121001
  3. ENAPREN [Suspect]
     Dosage: 30 TABS
     Route: 048
     Dates: start: 20121001

REACTIONS (4)
  - Somnolence [Unknown]
  - Intentional self-injury [Unknown]
  - International normalised ratio increased [Unknown]
  - Intentional overdose [Unknown]
